FAERS Safety Report 6945415-2 (Version None)
Quarter: 2010Q3

REPORT INFORMATION
  Report Type: 
  Country: None (occurrence: None)
  Receive Date: 20100827
  Receipt Date: 20100823
  Transmission Date: 20110219
  Serious: Yes (Death)
  Sender: FDA-Public Use
  Company Number: PHHY2010RU56550

PATIENT
  Sex: Female

DRUGS (10)
  1. EXELON [Suspect]
     Indication: CONFUSIONAL STATE
     Dosage: 3MG
     Route: 048
     Dates: start: 20100208, end: 20100217
  2. EXELON [Suspect]
     Dosage: 6 MG
  3. EXELON [Suspect]
     Dosage: 9 MG
  4. EXELON [Suspect]
     Dosage: 12 MG
     Route: 048
  5. CEREBROLYSIN [Concomitant]
     Dosage: 10ML, IV
     Dates: start: 20100208
  6. PANANGIN [Concomitant]
     Dosage: 10ML IV,
     Dates: start: 20100208
  7. HEPARIN [Concomitant]
     Dosage: 20000 UN DAILY
     Dates: start: 20100208, end: 20100216
  8. HEPARIN [Concomitant]
     Dosage: 30000 UN DAILY
     Dates: start: 20100217
  9. NIFEDIPINE [Concomitant]
     Dosage: 30MG, DAILY
     Dates: start: 20100208
  10. OMEPRAZOLE [Concomitant]
     Dosage: 20MG
     Dates: start: 20100208

REACTIONS (1)
  - ISCHAEMIC STROKE [None]
